FAERS Safety Report 12579617 (Version 1)
Quarter: 2016Q3

REPORT INFORMATION
  Report Type: Spontaneous
  Country: DK (occurrence: JP)
  Receive Date: 20160721
  Receipt Date: 20160721
  Transmission Date: 20161109
  Serious: Yes (Other)
  Sender: FDA-Public Use
  Company Number: JP-FRI-1000086249

PATIENT
  Age: 56 Year
  Sex: Male
  Weight: 71 kg

DRUGS (5)
  1. REFLEX [Suspect]
     Active Substance: MIRTAZAPINE
     Indication: PRODUCT USED FOR UNKNOWN INDICATION
     Route: 048
     Dates: start: 20150415
  2. FAMOTIDINE. [Concomitant]
     Active Substance: FAMOTIDINE
     Indication: PRODUCT USED FOR UNKNOWN INDICATION
     Route: 065
  3. LEXAPRO [Suspect]
     Active Substance: ESCITALOPRAM OXALATE
     Indication: DEPRESSIVE SYMPTOM
     Route: 048
     Dates: start: 20140515, end: 20160302
  4. PERORIC [Concomitant]
     Indication: NAUSEA
     Dosage: 9 DF
     Route: 048
     Dates: start: 20140515
  5. LYRICA [Concomitant]
     Active Substance: PREGABALIN
     Indication: SPINAL LIGAMENT OSSIFICATION
     Dosage: 4 DF
     Route: 048
     Dates: start: 20140604

REACTIONS (1)
  - Eructation [Recovered/Resolved]

NARRATIVE: CASE EVENT DATE: 20140515
